FAERS Safety Report 11752999 (Version 3)
Quarter: 2016Q1

REPORT INFORMATION
  Report Type: Spontaneous
  Country: US (occurrence: US)
  Receive Date: 20151119
  Receipt Date: 20160119
  Transmission Date: 20160525
  Serious: Yes (Life-Threatening, Hospitalization, Other)
  Sender: FDA-Public Use
  Company Number: US-009507513-1511USA007270

PATIENT
  Sex: Female
  Weight: 63.49 kg

DRUGS (4)
  1. CELEXA [Concomitant]
     Active Substance: CITALOPRAM HYDROBROMIDE
  2. MAXALT [Concomitant]
     Active Substance: RIZATRIPTAN BENZOATE
  3. LORAZEPAM. [Concomitant]
     Active Substance: LORAZEPAM
  4. BELSOMRA [Suspect]
     Active Substance: SUVOREXANT
     Indication: INSOMNIA
     Dosage: UNK5-10 MG, HS
     Route: 048

REACTIONS (4)
  - Alcoholic [Recovering/Resolving]
  - Feeling abnormal [Recovering/Resolving]
  - Suicide attempt [Recovering/Resolving]
  - Suicidal ideation [Not Recovered/Not Resolved]
